FAERS Safety Report 12860010 (Version 1)
Quarter: 2016Q4

REPORT INFORMATION
  Report Type: Spontaneous
  Country: JP (occurrence: JP)
  Receive Date: 20161019
  Receipt Date: 20161019
  Transmission Date: 20170207
  Serious: Yes (Hospitalization, Other)
  Sender: FDA-Public Use
  Company Number: JP-ALEMBIC PHARMACUETICALS LIMITED-2016SCAL000814

PATIENT
  Age: 55 Year
  Sex: Male

DRUGS (12)
  1. LITHIUM CARBONATE. [Suspect]
     Active Substance: LITHIUM CARBONATE
     Dosage: 600 MG, QD
  2. SERTRALINE [Concomitant]
     Active Substance: SERTRALINE HYDROCHLORIDE
     Indication: DEPRESSION
     Dosage: UNK
  3. FLUNITRAZEPAM [Concomitant]
     Active Substance: FLUNITRAZEPAM
     Indication: PRODUCT USED FOR UNKNOWN INDICATION
     Dosage: UNK
  4. ALLOPURINOL. [Concomitant]
     Active Substance: ALLOPURINOL
     Indication: PRODUCT USED FOR UNKNOWN INDICATION
     Dosage: UNK
  5. RAMELTEON [Concomitant]
     Active Substance: RAMELTEON
     Indication: PRODUCT USED FOR UNKNOWN INDICATION
     Dosage: UNK
  6. POTASSIUM CITRATE. [Concomitant]
     Active Substance: POTASSIUM CITRATE
     Indication: PRODUCT USED FOR UNKNOWN INDICATION
     Dosage: UNK
  7. OLANZAPINE. [Concomitant]
     Active Substance: OLANZAPINE
     Indication: BIPOLAR DISORDER
     Dosage: 10 MG, QD
  8. LITHIUM CARBONATE. [Suspect]
     Active Substance: LITHIUM CARBONATE
     Indication: BIPOLAR DISORDER
     Dosage: 400 MG, QD
  9. ZOLPIDEM [Concomitant]
     Active Substance: ZOLPIDEM\ZOLPIDEM TARTRATE
     Indication: PRODUCT USED FOR UNKNOWN INDICATION
     Dosage: UNK
  10. OLANZAPINE. [Concomitant]
     Active Substance: OLANZAPINE
     Dosage: 20 MG, QD
  11. ALPRAZOLAM. [Concomitant]
     Active Substance: ALPRAZOLAM
     Indication: PRODUCT USED FOR UNKNOWN INDICATION
     Dosage: UNK
  12. SODIUM CITRATE. [Concomitant]
     Active Substance: SODIUM CITRATE
     Indication: PRODUCT USED FOR UNKNOWN INDICATION
     Dosage: UNK

REACTIONS (4)
  - Dysarthria [Recovered/Resolved]
  - Central nervous system lesion [Recovered/Resolved]
  - Tremor [Recovered/Resolved]
  - Toxicity to various agents [Recovered/Resolved]
